FAERS Safety Report 13892269 (Version 3)
Quarter: 2017Q4

REPORT INFORMATION
  Report Type: Spontaneous
  Country: US (occurrence: US)
  Receive Date: 20170822
  Receipt Date: 20171005
  Transmission Date: 20180320
  Serious: Yes (Other)
  Sender: FDA-Public Use
  Company Number: PHEH2017US025757

PATIENT
  Sex: Female

DRUGS (2)
  1. BABY ASPIRIN [Concomitant]
     Active Substance: ASPIRIN
     Indication: PRODUCT USED FOR UNKNOWN INDICATION
     Route: 065
  2. EXFORGE [Suspect]
     Active Substance: AMLODIPINE BESYLATE\VALSARTAN
     Indication: PRODUCT USED FOR UNKNOWN INDICATION
     Dosage: UNK UNK, QD
     Route: 065

REACTIONS (14)
  - Injury [Unknown]
  - Drug hypersensitivity [Unknown]
  - Myocardial infarction [Unknown]
  - Cerebrovascular accident [Unknown]
  - Product packaging issue [Unknown]
  - Feeling abnormal [Unknown]
  - Pruritus [Unknown]
  - Chromaturia [Unknown]
  - Skin disorder [Unknown]
  - Fatigue [Unknown]
  - Product colour issue [Unknown]
  - Memory impairment [Unknown]
  - Liver disorder [Unknown]
  - Hypertension [Unknown]
